FAERS Safety Report 5704624-0 (Version None)
Quarter: 2008Q2

REPORT INFORMATION
  Report Type: 
  Country: None (occurrence: None)
  Receive Date: 20080414
  Receipt Date: 20080407
  Transmission Date: 20081010
  Serious: Yes (Hospitalization)
  Sender: FDA-Public Use
  Company Number: FR-ASTRAZENECA-2008CG00530

PATIENT
  Age: 23113 Day
  Sex: Male

DRUGS (6)
  1. TENORMIN [Suspect]
     Route: 048
     Dates: start: 20040101
  2. KETEK [Suspect]
     Route: 048
     Dates: start: 20071126, end: 20071129
  3. ELISOR [Suspect]
     Route: 048
     Dates: start: 20040101, end: 20071129
  4. TRIATEC [Suspect]
     Route: 065
     Dates: start: 20040101
  5. KARDEGIC [Suspect]
     Route: 065
     Dates: start: 20040101
  6. ALLOPURINOL [Suspect]
     Route: 065
     Dates: start: 19940101

REACTIONS (3)
  - ARTHRALGIA [None]
  - MYALGIA [None]
  - PARAESTHESIA [None]
